FAERS Safety Report 9032946 (Version 3)
Quarter: 2013Q3

REPORT INFORMATION
  Report Type: Spontaneous
  Country: US (occurrence: ES)
  Receive Date: 20130128
  Receipt Date: 20130712
  Transmission Date: 20140515
  Serious: Yes (Hospitalization)
  Sender: FDA-Public Use
  Company Number: ES-009507513-0709ESP00015

PATIENT
  Age: 6 Year
  Sex: Male

DRUGS (2)
  1. SINGULAIR [Suspect]
     Indication: ASTHMA
     Dosage: 5 MG, QD
     Route: 048
     Dates: start: 200604, end: 200708
  2. SINGULAIR [Suspect]
     Indication: CONJUNCTIVITIS

REACTIONS (3)
  - Obsessive-compulsive disorder [Recovering/Resolving]
  - Nightmare [Recovered/Resolved]
  - Prescribed overdose [Unknown]
